FAERS Safety Report 23086880 (Version 2)
Quarter: 2023Q4

REPORT INFORMATION
  Report Type: Spontaneous
  Country: IN (occurrence: None)
  Receive Date: 20231020
  Receipt Date: 20231110
  Transmission Date: 20240110
  Serious: Yes (Death)
  Sender: FDA-Public Use
  Company Number: 2023A236453

PATIENT
  Age: 28124 Day
  Sex: Female
  Weight: 60 kg

DRUGS (1)
  1. IMFINZI [Suspect]
     Active Substance: DURVALUMAB
     Indication: Bladder metaplasia
     Dosage: 1500.0UG UNKNOWN
     Route: 042
     Dates: start: 20230907, end: 20230907

REACTIONS (2)
  - Dyspnoea [Fatal]
  - Tachycardia [Fatal]
